FAERS Safety Report 10213936 (Version 2)
Quarter: 2014Q2

REPORT INFORMATION
  Report Type: Spontaneous
  Country: ES (occurrence: ES)
  Receive Date: 20140603
  Receipt Date: 20140605
  Transmission Date: 20141212
  Serious: Yes (Hospitalization)
  Sender: FDA-Public Use
  Company Number: ES-TEVA-483808ISR

PATIENT
  Age: 36 Year
  Sex: Male

DRUGS (3)
  1. COPAXONE [Suspect]
     Indication: MULTIPLE SCLEROSIS
     Dosage: 20 MG/ML DAILY;
     Route: 058
     Dates: start: 2009
  2. RIVOTRIL [Interacting]
     Dosage: 1 MILLIGRAM DAILY;
     Route: 048
     Dates: start: 201402
  3. AUXINA [Concomitant]
     Route: 048

REACTIONS (11)
  - Immediate post-injection reaction [Recovering/Resolving]
  - Pyrexia [Recovering/Resolving]
  - Flushing [Recovering/Resolving]
  - Somnolence [Recovering/Resolving]
  - Erythema [Recovering/Resolving]
  - Hypotension [Recovering/Resolving]
  - Drug interaction [Recovering/Resolving]
  - Pruritus [Recovering/Resolving]
  - Malaise [Recovering/Resolving]
  - Cyanosis [Recovering/Resolving]
  - Tachycardia [Recovering/Resolving]
